FAERS Safety Report 4404642-9 (Version None)
Quarter: 2004Q3

REPORT INFORMATION
  Report Type: 
  Country: None (occurrence: None)
  Receive Date: 20040722
  Receipt Date: 20040708
  Transmission Date: 20050211
  Serious: Yes (Other)
  Sender: FDA-Public Use
  Company Number: US-AMGEN-US083100

PATIENT
  Sex: Female

DRUGS (7)
  1. ENBREL [Suspect]
     Indication: PSORIATIC ARTHROPATHY
     Route: 058
     Dates: start: 20040622, end: 20040701
  2. FLONASE [Concomitant]
  3. HYDROCHLOROTHIAZIDE [Concomitant]
  4. VIOXX [Concomitant]
  5. CLARINEX [Concomitant]
  6. BUSPAR [Concomitant]
  7. ASPIRIN [Concomitant]

REACTIONS (1)
  - BLINDNESS [None]
